FAERS Safety Report 19967602 (Version 1)
Quarter: 2021Q4

REPORT INFORMATION
  Report Type: Spontaneous
  Country: US (occurrence: US)
  Receive Date: 20211019
  Receipt Date: 20211019
  Transmission Date: 20220303
  Serious: Yes (Other)
  Sender: FDA-Public Use
  Company Number: US-UROGEN PHARMA LTD.-2021-UGN-000036

PATIENT
  Age: 67 Year
  Sex: Male

DRUGS (5)
  1. JELMYTO [Suspect]
     Active Substance: MITOMYCIN
     Indication: Product used for unknown indication
     Dosage: 1 MG (INSTILLATION)
     Dates: start: 20210527, end: 20210527
  2. JELMYTO [Suspect]
     Active Substance: MITOMYCIN
     Dosage: 1 MG (INSTILLATION)
     Dates: start: 20210603, end: 20210603
  3. JELMYTO [Suspect]
     Active Substance: MITOMYCIN
     Dosage: 1 MG (INSTILLATION)
     Dates: start: 20210617, end: 20210617
  4. JELMYTO [Suspect]
     Active Substance: MITOMYCIN
     Dosage: 1 MG (INSTILLATION)
     Dates: start: 20210624, end: 20210624
  5. JELMYTO [Suspect]
     Active Substance: MITOMYCIN
     Dosage: 1 MG (INSTILLATION)
     Dates: start: 20210701, end: 20210701

REACTIONS (2)
  - Pyelonephritis [Not Recovered/Not Resolved]
  - Pyrexia [Unknown]
